FAERS Safety Report 10166114 (Version 1)
Quarter: 2014Q2

REPORT INFORMATION
  Report Type: Spontaneous
  Country: CA (occurrence: CA)
  Receive Date: 20140512
  Receipt Date: 20140512
  Transmission Date: 20141212
  Serious: Yes (Other)
  Sender: FDA-Public Use
  Company Number: CA-ROCHE-1396392

PATIENT
  Age: 38 Year
  Sex: Female

DRUGS (5)
  1. PERJETA [Suspect]
     Indication: PRODUCT USED FOR UNKNOWN INDICATION
     Dosage: THERAPY DURATION: 1.0 DAY
     Route: 042
  2. PERJETA [Suspect]
     Dosage: THERAPY DURATION: 1.0 DAYS
     Route: 042
  3. HERCEPTIN [Suspect]
     Indication: PRODUCT USED FOR UNKNOWN INDICATION
     Dosage: THERAPY DURATION: 1.0 DAYS
     Route: 065
  4. TAXOTERE [Suspect]
     Indication: PRODUCT USED FOR UNKNOWN INDICATION
     Route: 065
  5. PACLITAXEL [Concomitant]
     Route: 065

REACTIONS (5)
  - Back pain [Recovered/Resolved]
  - Muscle tightness [Recovered/Resolved]
  - Musculoskeletal pain [Recovered/Resolved]
  - Neuropathy peripheral [Recovered/Resolved]
  - Pruritus [Recovered/Resolved]
